FAERS Safety Report 5363050-7 (Version None)
Quarter: 2007Q2

REPORT INFORMATION
  Report Type: 
  Country: None (occurrence: None)
  Receive Date: 20070615
  Receipt Date: 20070612
  Transmission Date: 20071010
  Serious: Yes (Death, Hospitalization)
  Sender: FDA-Public Use
  Company Number: 163-21880-07060476

PATIENT
  Age: 94 Year
  Sex: Male

DRUGS (13)
  1. REVILIMIDB (LENALIDOMIDE) (5 MILLIGRAM, CAPSULES) [Suspect]
     Indication: MYELODYSPLASTIC SYNDROME
     Dosage: 2.5 MG, 1 IN 1 D, ORAL
     Route: 048
     Dates: start: 20070124
  2. COUMADIN [Concomitant]
  3. LOPRESSOR [Concomitant]
  4. AMIODARONE HCL [Concomitant]
  5. LASIX [Concomitant]
  6. SYNTHROID (LEVOXYL) (LEVOTHYROXINE SODIUM) [Concomitant]
  7. FLOMAX [Concomitant]
  8. SIMVASTATIN [Concomitant]
  9. ASPIRIN [Concomitant]
  10. CALCIUM (CALCIUM) [Concomitant]
  11. MULTIVITAMIN [Concomitant]
  12. VITAMIN B12 [Concomitant]
  13. ASCORBIC ACID [Concomitant]

REACTIONS (2)
  - FALL [None]
  - INTERNATIONAL NORMALISED RATIO INCREASED [None]
